FAERS Safety Report 6064906-2 (Version None)
Quarter: 2009Q1

REPORT INFORMATION
  Report Type: 
  Country: None (occurrence: None)
  Receive Date: 20090121
  Receipt Date: 20080320
  Transmission Date: 20090719
  Serious: Yes (Hospitalization, Other)
  Sender: FDA-Public Use
  Company Number: HQWYE608425FEB05

PATIENT
  Age: 63 Year
  Sex: Female

DRUGS (4)
  1. PREMPRO [Suspect]
     Indication: MENOPAUSAL SYMPTOMS
     Dosage: ORAL
     Route: 048
     Dates: start: 19820101, end: 20010101
  2. ESTROGENS SOL/INJ [Suspect]
     Indication: MENOPAUSAL SYMPTOMS
     Dates: start: 19820101, end: 20010101
  3. PROGESTERONE [Suspect]
     Indication: MENOPAUSAL SYMPTOMS
     Dates: start: 19820101, end: 20010101
  4. PROVERA [Suspect]
     Indication: MENOPAUSAL SYMPTOMS
     Dosage: ORAL
     Route: 048
     Dates: start: 19820101, end: 20010101

REACTIONS (1)
  - BREAST CANCER [None]
